FAERS Safety Report 6383137-X (Version None)
Quarter: 2009Q3

REPORT INFORMATION
  Report Type: 
  Country: None (occurrence: None)
  Receive Date: 20090928
  Receipt Date: 20090914
  Transmission Date: 20100115
  Serious: Yes (Other)
  Sender: FDA-Public Use
  Company Number: 2009S1007235

PATIENT
  Sex: Male

DRUGS (2)
  1. PHOSPHOSODA FLAVOR NOT SPECIFIED [Suspect]
     Indication: COLONOSCOPY
     Dosage: PO; PO
     Route: 048
     Dates: start: 20040101
  2. PHOSPHOSODA FLAVOR NOT SPECIFIED [Suspect]
     Indication: COLONOSCOPY
     Dosage: PO; PO
     Route: 048
     Dates: start: 20040101

REACTIONS (2)
  - RENAL FAILURE ACUTE [None]
  - RENAL TRANSPLANT [None]
